FAERS Safety Report 14381126 (Version 2)
Quarter: 2018Q1

REPORT INFORMATION
  Report Type: Spontaneous
  Country: AT (occurrence: AT)
  Receive Date: 20180112
  Receipt Date: 20180213
  Transmission Date: 20180509
  Serious: Yes (Hospitalization, Other)
  Sender: FDA-Public Use
  Company Number: PHHY2015AT177530

PATIENT
  Age: 26 Year
  Sex: Male

DRUGS (14)
  1. OLANZAPINE. [Suspect]
     Active Substance: OLANZAPINE
     Dosage: 20 MG, QD
     Route: 048
     Dates: start: 20150615
  2. TEMESTA (LORAZEPAM) [Suspect]
     Active Substance: LORAZEPAM
     Indication: PRODUCT USED FOR UNKNOWN INDICATION
     Dosage: 4 MG, QD
     Route: 065
     Dates: start: 20150617, end: 20150702
  3. TEMESTA (LORAZEPAM) [Suspect]
     Active Substance: LORAZEPAM
     Dosage: (1-5 MG), QD
     Route: 065
     Dates: start: 20150812, end: 20150901
  4. LOVENOX [Concomitant]
     Active Substance: ENOXAPARIN SODIUM
     Indication: PRODUCT USED FOR UNKNOWN INDICATION
     Dosage: 40 MG, UNK
     Route: 065
     Dates: start: 20150618, end: 20150622
  5. LORAZEPAM. [Suspect]
     Active Substance: LORAZEPAM
     Dosage: 5 MG, QD (1-5 MG)
     Route: 065
     Dates: start: 20150812, end: 20150901
  6. ABILIFY [Suspect]
     Active Substance: ARIPIPRAZOLE
     Dosage: 20 MG, QD
     Route: 048
     Dates: start: 20150619, end: 20150902
  7. ZYPREXA [Suspect]
     Active Substance: OLANZAPINE
     Dosage: 20 MG, QD
     Route: 048
     Dates: start: 20150615
  8. OLANZAPINE. [Suspect]
     Active Substance: OLANZAPINE
     Indication: PRODUCT USED FOR UNKNOWN INDICATION
     Dosage: 10 MG, QD
     Route: 048
     Dates: start: 20150601, end: 20150614
  9. ABILIFY [Suspect]
     Active Substance: ARIPIPRAZOLE
     Indication: PRODUCT USED FOR UNKNOWN INDICATION
     Dosage: 10 MG, QD
     Route: 048
     Dates: start: 20150617, end: 20150618
  10. ABILIFY [Suspect]
     Active Substance: ARIPIPRAZOLE
     Dosage: 10 MG, QD
     Route: 048
     Dates: start: 20150903, end: 20150910
  11. LORAZEPAM. [Suspect]
     Active Substance: LORAZEPAM
     Indication: PRODUCT USED FOR UNKNOWN INDICATION
     Dosage: 4 MG, QD
     Route: 065
     Dates: start: 20150617, end: 20150702
  12. LORAZEPAM. [Suspect]
     Active Substance: LORAZEPAM
     Dosage: 7.5 MG, QD (7.5 MG-10MG)
     Route: 065
     Dates: start: 20150703, end: 20150811
  13. TEMESTA (LORAZEPAM) [Suspect]
     Active Substance: LORAZEPAM
     Dosage: 7.5 MG, UNK
     Route: 065
     Dates: start: 20150703, end: 20150811
  14. ZYPREXA [Suspect]
     Active Substance: OLANZAPINE
     Indication: PRODUCT USED FOR UNKNOWN INDICATION
     Dosage: 10 MG, QD
     Route: 048
     Dates: start: 20150601, end: 20150614

REACTIONS (2)
  - Catatonia [Unknown]
  - Pulmonary embolism [Recovered/Resolved]

NARRATIVE: CASE EVENT DATE: 20150630
